FAERS Safety Report 5624583-9 (Version None)
Quarter: 2008Q1

REPORT INFORMATION
  Report Type: 
  Country: None (occurrence: None)
  Receive Date: 20080208
  Receipt Date: 20080208
  Transmission Date: 20080703
  Serious: No
  Sender: FDA-Public Use
  Company Number: None

PATIENT
  Age: 76 Year
  Sex: Male

DRUGS (2)
  1. FELODIPINE;;;CALCIUM CHANNEL BLOCKERS; ;; [Suspect]
     Dosage: ORAL
     Route: 048
  2. MAXZIDE [Suspect]
     Indication: HYPERTENSION
     Dosage: ORAL;25.0 MILLIGRAM
     Route: 048
     Dates: start: 20070214, end: 20071016

REACTIONS (2)
  - NEPHRITIS INTERSTITIAL [None]
  - OEDEMA PERIPHERAL [None]
